FAERS Safety Report 12856402 (Version 1)
Quarter: 2016Q4

REPORT INFORMATION
  Report Type: Spontaneous
  Country: US (occurrence: US)
  Receive Date: 20161018
  Receipt Date: 20161018
  Transmission Date: 20170207
  Serious: Yes (Death)
  Sender: FDA-Public Use
  Company Number: US-CIPLA LTD.-2016US19411

PATIENT

DRUGS (7)
  1. CHLORPROMAZINE. [Suspect]
     Active Substance: CHLORPROMAZINE
     Dosage: 100 MG, BID
     Route: 048
  2. TRAMADOL. [Suspect]
     Active Substance: TRAMADOL
     Dosage: 200 MG, UNK
     Route: 048
  3. CEFUROXIME. [Suspect]
     Active Substance: CEFUROXIME
     Dosage: 1.5 MG, UNK
     Route: 042
  4. DIAZEPAM. [Suspect]
     Active Substance: DIAZEPAM
     Dosage: UNK
     Route: 042
  5. DICLOFENAC [Suspect]
     Active Substance: DICLOFENAC
     Dosage: 100 MG, UNK
     Route: 065
  6. LORAZEPAM. [Suspect]
     Active Substance: LORAZEPAM
     Dosage: 2 MG, UNK
     Route: 065
  7. OLANZAPINE. [Suspect]
     Active Substance: OLANZAPINE
     Indication: AGITATION
     Dosage: 15 MG, OVER 6 HRS
     Route: 030

REACTIONS (1)
  - Myocardial infarction [Fatal]
